FAERS Safety Report 9511740 (Version 1)
Quarter: 2013Q1

REPORT INFORMATION
  Report Type: Spontaneous
  Country: US (occurrence: None)
  Receive Date: 20130305
  Receipt Date: 20130305
  Transmission Date: 20140127
  Serious: Yes (Other)
  Sender: FDA-Public Use
  Company Number: 163-21880-12052096

PATIENT
  Age: 59 Year
  Sex: Male
  Weight: 78.47 kg

DRUGS (5)
  1. REVLIMID [Suspect]
     Indication: CHRONIC LYMPHOCYTIC LEUKAEMIA
     Dosage: 10 MG, 1 IN 1 D, PO
     Route: 048
     Dates: start: 20120412
  2. LORAZEPAM (LORAZEPAM) (UNKNOWN) [Concomitant]
  3. MIRALAX (MACROGOL) (UNKNOWN) [Concomitant]
  4. OXYCODONE (OXYCODONE) (UNKNOWN) (OXYCODONE) [Concomitant]
  5. TRAMADOL (TRAMADOL) (UNKNOWN) [Concomitant]

REACTIONS (1)
  - Anaemia [None]
